FAERS Safety Report 10246316 (Version 3)
Quarter: 2014Q4

REPORT INFORMATION
  Report Type: Spontaneous
  Country: PT (occurrence: None)
  Receive Date: 20140617
  Receipt Date: 20141118
  Transmission Date: 20150528
  Serious: Yes (Life-Threatening, Other)
  Sender: FDA-Public Use
  Company Number: FK201402334

PATIENT
  Age: 27 Year
  Sex: Female
  Weight: 95 kg

DRUGS (2)
  1. AMPICILINA LABELSFAL 1000 MG (AMPICILLIN) (AMPICILLIN) [Suspect]
     Active Substance: AMPICILLIN
     Indication: PROPHYLAXIS
     Dosage: (NOT OTHERWISE SPECIFIED)
     Route: 042
     Dates: start: 20140313, end: 20140313
  2. MISOPROSTOL. [Concomitant]
     Active Substance: MISOPROSTOL

REACTIONS (3)
  - Anaphylactic reaction [None]
  - Drug hypersensitivity [None]
  - Reaction to drug excipients [None]

NARRATIVE: CASE EVENT DATE: 20140313
